FAERS Safety Report 12602314 (Version 1)
Quarter: 2016Q3

REPORT INFORMATION
  Report Type: Spontaneous
  Country: US (occurrence: US)
  Receive Date: 20160728
  Receipt Date: 20160728
  Transmission Date: 20161109
  Serious: No
  Sender: FDA-Public Use
  Company Number: US-BAUSCH-BL-2014-002409

PATIENT
  Sex: Female

DRUGS (1)
  1. OPCON-A [Suspect]
     Active Substance: NAPHAZOLINE HYDROCHLORIDE\PHENIRAMINE MALEATE
     Indication: DRY EYE
     Dosage: 1 X DAILY
     Dates: start: 20131204, end: 20140504

REACTIONS (5)
  - Erythema [Recovered/Resolved]
  - Vitreous floaters [Recovering/Resolving]
  - Vision blurred [Recovered/Resolved]
  - Eyelid skin dryness [Recovered/Resolved]
  - Blister [Recovered/Resolved]

NARRATIVE: CASE EVENT DATE: 2014
